FAERS Safety Report 17110333 (Version 1)
Quarter: 2019Q4

REPORT INFORMATION
  Report Type: Spontaneous
  Country: US (occurrence: US)
  Receive Date: 20191204
  Receipt Date: 20191204
  Transmission Date: 20200122
  Serious: No
  Sender: FDA-Public Use
  Company Number: US-BEH-2019110114

PATIENT
  Age: 14 Year
  Sex: Female

DRUGS (6)
  1. BERINERT [Suspect]
     Active Substance: HUMAN C1-ESTERASE INHIBITOR
     Indication: HEREDITARY ANGIOEDEMA
  2. BERINERT [Suspect]
     Active Substance: HUMAN C1-ESTERASE INHIBITOR
     Indication: HEREDITARY ANGIOEDEMA
     Dosage: 1000 INTERNATIONAL UNIT, PRN
     Route: 042
     Dates: start: 20190413
  3. BERINERT [Suspect]
     Active Substance: HUMAN C1-ESTERASE INHIBITOR
     Indication: HEREDITARY ANGIOEDEMA
  4. BENADRYL [Concomitant]
     Active Substance: DIPHENHYDRAMINE HYDROCHLORIDE
  5. BERINERT [Suspect]
     Active Substance: HUMAN C1-ESTERASE INHIBITOR
     Indication: HEREDITARY ANGIOEDEMA
     Dosage: 1000 INTERNATIONAL UNIT, PRN
     Route: 042
     Dates: start: 20190413
  6. ZOFRAN [Concomitant]
     Active Substance: ONDANSETRON HYDROCHLORIDE

REACTIONS (1)
  - Injection site pain [Not Recovered/Not Resolved]
